FAERS Safety Report 8340417-6 (Version None)
Quarter: 2012Q2

REPORT INFORMATION
  Report Type: 
  Country: None (occurrence: None)
  Receive Date: 20120507
  Receipt Date: 20120507
  Transmission Date: 20120825
  Serious: No
  Sender: FDA-Public Use
  Company Number: None

PATIENT
  Age: 76 Year
  Sex: Female
  Weight: 73.935 kg

DRUGS (1)
  1. ZETIA [Suspect]
     Indication: BLOOD CHOLESTEROL INCREASED
     Dosage: |DOSAGETEXT: ONE HALF PILL||STRENGTH: 10 MG||FREQ: EVERY NIGHT||ROUTE: ORAL|
     Route: 048
     Dates: start: 20080301, end: 20120301

REACTIONS (1)
  - ALOPECIA [None]
